FAERS Safety Report 4965845-8 (Version None)
Quarter: 2006Q2

REPORT INFORMATION
  Report Type: 
  Country: None (occurrence: None)
  Receive Date: 20060404
  Receipt Date: 20060404
  Transmission Date: 20061013
  Serious: Yes (Hospitalization)
  Sender: FDA-Public Use
  Company Number: None

PATIENT
  Sex: Male
  Weight: 91.6 kg

DRUGS (14)
  1. VELCADE [Suspect]
     Indication: MULTIPLE MYELOMA
     Dosage: 1.3 MG/M2  DAY 1 AND 4  IV
     Route: 042
     Dates: start: 20060310
  2. VELCADE [Suspect]
     Indication: MULTIPLE MYELOMA
     Dosage: 1.3 MG/M2  DAY 1 AND 4  IV
     Route: 042
     Dates: start: 20060313
  3. DOXORUBICIN HCL [Suspect]
     Dosage: 15MG/M2   DAYS 1   IV
     Route: 042
     Dates: start: 20060310
  4. PERCOCET [Concomitant]
  5. METHADONE [Concomitant]
  6. CALCIUM GLUCONATE [Concomitant]
  7. RANITIDINE [Concomitant]
  8. WARFARIN [Concomitant]
  9. TERAZOSIN [Concomitant]
  10. DOCUSATE [Concomitant]
  11. POTASSIUM CHLORIDE [Concomitant]
  12. NEURONTIN [Concomitant]
  13. VANCOMYCIN [Concomitant]
  14. LEVAQUIN [Concomitant]

REACTIONS (8)
  - CLOSTRIDIAL INFECTION [None]
  - COLITIS [None]
  - CONFUSIONAL STATE [None]
  - LOBAR PNEUMONIA [None]
  - LUNG INFECTION [None]
  - NIGHT SWEATS [None]
  - PYREXIA [None]
  - STAPHYLOCOCCAL INFECTION [None]
